FAERS Safety Report 23522796 (Version 1)
Quarter: 2024Q1

REPORT INFORMATION
  Report Type: Report from Study
  Country: US (occurrence: None)
  Receive Date: 20240214
  Receipt Date: 20240214
  Transmission Date: 20240409
  Serious: Yes (Death, Other)
  Sender: FDA-Public Use
  Company Number: 2024A036485

PATIENT
  Age: 23852 Day
  Sex: Female

DRUGS (4)
  1. LYNPARZA [Suspect]
     Active Substance: OLAPARIB
     Indication: Malignant connective tissue neoplasm
     Route: 048
  2. TALZENNA [Concomitant]
     Active Substance: TALAZOPARIB TOSYLATE
  3. ZEJULA [Concomitant]
     Active Substance: NIRAPARIB
  4. TEMOZOLOMIDE [Concomitant]
     Active Substance: TEMOZOLOMIDE

REACTIONS (1)
  - Death [Fatal]

NARRATIVE: CASE EVENT DATE: 20240105
